FAERS Safety Report 6160749-X (Version None)
Quarter: 2009Q2

REPORT INFORMATION
  Report Type: 
  Country: None (occurrence: None)
  Receive Date: 20090420
  Receipt Date: 20090407
  Transmission Date: 20091009
  Serious: Yes (Other)
  Sender: FDA-Public Use
  Company Number: JP-PFIZER INC-2009176719

PATIENT

DRUGS (7)
  1. LIPITOR [Suspect]
     Indication: HYPERCHOLESTEROLAEMIA
     Dosage: 10 MG, UNK
     Route: 048
     Dates: start: 20081119, end: 20090218
  2. MIGLITOL [Suspect]
     Dosage: 150 MG, UNK
     Route: 048
     Dates: start: 20081127, end: 20090218
  3. PLAVIX [Suspect]
     Dosage: 75 MG, UNK
     Route: 048
     Dates: start: 20081119, end: 20081226
  4. FAMOTIDINE [Suspect]
     Dosage: 10 MG, UNK
     Route: 048
     Dates: start: 20081127, end: 20090218
  5. AMARYL [Suspect]
     Dosage: 1 MG, UNK
     Route: 048
     Dates: start: 20081130, end: 20090218
  6. ASPIRIN [Suspect]
     Dosage: 100 MG, UNK
     Route: 048
     Dates: start: 20081227, end: 20090218
  7. SHEBIOL [Concomitant]
     Route: 048

REACTIONS (1)
  - THROMBOCYTOPENIA [None]
